FAERS Safety Report 6470033-2 (Version None)
Quarter: 2009Q4

REPORT INFORMATION
  Report Type: 
  Country: None (occurrence: None)
  Receive Date: 20091203
  Receipt Date: 20080123
  Transmission Date: 20100525
  Serious: Yes (Hospitalization, Other)
  Sender: FDA-Public Use
  Company Number: US-ELI_LILLY_AND_COMPANY-US200711003111

PATIENT
  Sex: Female

DRUGS (3)
  1. FORTEO [Suspect]
     Indication: OSTEOPOROSIS
     Dosage: 20 UG, DAILY (1/D)
     Dates: start: 20061001, end: 20070901
  2. FORTEO [Suspect]
     Dosage: UNK, UNK
     Route: 058
     Dates: start: 20071001
  3. DILANTIN [Concomitant]

REACTIONS (4)
  - CARTILAGE INJURY [None]
  - DRUG INEFFECTIVE [None]
  - GAIT DISTURBANCE [None]
  - SURGICAL FAILURE [None]
